FAERS Safety Report 9778243 (Version 1)
Quarter: 2013Q4

REPORT INFORMATION
  Report Type: Spontaneous
  Country: GB (occurrence: GB)
  Receive Date: 20131223
  Receipt Date: 20131223
  Transmission Date: 20140711
  Serious: Yes (Hospitalization)
  Sender: FDA-Public Use
  Company Number: GB-TEVA-451441ISR

PATIENT
  Age: 68 Year
  Sex: Male
  Weight: 90 kg

DRUGS (3)
  1. TAMSULOSIN [Suspect]
     Indication: PROSTATOMEGALY
     Dosage: 400 MICROGRAM DAILY; MODIFIED-RELEASE CAPSULE, HARD; IN THE MORNING. LONG TERM MEDICATION.
     Route: 048
  2. DIFFUNDOX XL [Suspect]
     Indication: PROSTATOMEGALY
     Dosage: 400 MICROGRAM DAILY; MODIFIED-RELEASE CAPSULE, HARD; IN THE MORNING. LONG TERM MEDICATION
     Route: 048
  3. METFORMIN [Concomitant]
     Dosage: 1000 MILLIGRAM DAILY; 1 IN THE MORNING AND 1 IN THE EVENING
     Route: 048
     Dates: start: 2000

REACTIONS (5)
  - Depressed level of consciousness [Recovering/Resolving]
  - Hypotension [Recovering/Resolving]
  - Nausea [Recovering/Resolving]
  - Vomiting [Recovering/Resolving]
  - Defaecation urgency [Recovering/Resolving]
